FAERS Safety Report 5279328-1 (Version None)
Quarter: 2007Q1

REPORT INFORMATION
  Report Type: 
  Country: None (occurrence: None)
  Receive Date: 20070328
  Receipt Date: 20060331
  Transmission Date: 20070707
  Serious: No
  Sender: FDA-Public Use
  Company Number: US-AMGEN-US174657

PATIENT
  Sex: Female

DRUGS (3)
  1. NEULASTA [Suspect]
     Indication: CHEMOTHERAPY
     Route: 058
     Dates: start: 20050601, end: 20050901
  2. DOXORUBICIN HYDROCHLORIDE [Concomitant]
     Route: 065
     Dates: start: 20050613
  3. CYCLOPHOSPHAMIDE [Concomitant]
     Route: 065
     Dates: start: 20050613

REACTIONS (3)
  - ARTHRITIS [None]
  - BONE PAIN [None]
  - MUSCULOSKELETAL PAIN [None]
